FAERS Safety Report 7538295-8 (Version None)
Quarter: 2011Q2

REPORT INFORMATION
  Report Type: 
  Country: None (occurrence: None)
  Receive Date: 20110609
  Receipt Date: 20070308
  Transmission Date: 20111010
  Serious: Yes (Other)
  Sender: FDA-Public Use
  Company Number: PHMT2006CA02298

PATIENT
  Sex: Male

DRUGS (3)
  1. AMIODARONE HCL [Suspect]
  2. DIOVAN [Suspect]
     Indication: HYPERTENSION
     Dosage: 80 MG, UNK
     Route: 048
     Dates: start: 20000101
  3. ATENOLOL [Suspect]

REACTIONS (4)
  - HEART RATE INCREASED [None]
  - SICK SINUS SYNDROME [None]
  - BRADYCARDIA [None]
  - ATRIAL FIBRILLATION [None]
